FAERS Safety Report 5790299-1 (Version None)
Quarter: 2008Q2

REPORT INFORMATION
  Report Type: 
  Country: None (occurrence: None)
  Receive Date: 20080626
  Receipt Date: 20080513
  Transmission Date: 20081010
  Serious: No
  Sender: FDA-Public Use
  Company Number: A0707800A

PATIENT
  Weight: 96.4 kg

DRUGS (1)
  1. ALLI [Suspect]
     Route: 048
     Dates: start: 20080121

REACTIONS (4)
  - CONSTIPATION [None]
  - DRUG INEFFECTIVE [None]
  - FLATULENCE [None]
  - WEIGHT INCREASED [None]
